FAERS Safety Report 10689316 (Version 1)
Quarter: 2015Q1

REPORT INFORMATION
  Report Type: Spontaneous
  Country: US (occurrence: US)
  Receive Date: 20150105
  Receipt Date: 20150105
  Transmission Date: 20150720
  Serious: Yes (Hospitalization)
  Sender: FDA-Public Use
  Company Number: US-ACCORD-027923

PATIENT
  Age: 39 Year
  Sex: Male

DRUGS (3)
  1. VALPROIC ACID. [Interacting]
     Active Substance: VALPROIC ACID
     Indication: BIPOLAR I DISORDER
     Dosage: BEFORE BAD TIME
  2. LORAZEPAM. [Concomitant]
     Active Substance: LORAZEPAM
     Dosage: BEFORE BAD TIME
  3. QUETIAPINE [Suspect]
     Active Substance: QUETIAPINE
     Indication: BIPOLAR I DISORDER
     Dosage: BEFORE BAD TIME

REACTIONS (5)
  - Acute prerenal failure [Recovering/Resolving]
  - Hyperlipidaemia [Recovered/Resolved]
  - Drug interaction [Unknown]
  - Diabetic ketoacidosis [Recovering/Resolving]
  - Hyperosmolar state [Recovering/Resolving]
